FAERS Safety Report 18009866 (Version 8)
Quarter: 2021Q1

REPORT INFORMATION
  Report Type: Spontaneous
  Country: US (occurrence: US)
  Receive Date: 20200710
  Receipt Date: 20210323
  Transmission Date: 20210419
  Serious: Yes (Hospitalization)
  Sender: FDA-Public Use
  Company Number: US-SA-2020SA178243

PATIENT
  Age: 59 Year
  Sex: Female

DRUGS (3)
  1. DUPIXENT [Suspect]
     Active Substance: DUPILUMAB
     Dosage: 300 MG, QOW
     Route: 058
     Dates: start: 202007
  2. DUPIXENT [Suspect]
     Active Substance: DUPILUMAB
     Indication: DERMATITIS ATOPIC
     Dosage: 300 MG, QOW
     Route: 058
     Dates: start: 2021
  3. DUPIXENT [Suspect]
     Active Substance: DUPILUMAB
     Indication: DERMATITIS ATOPIC
     Dosage: 600 MG, 1X
     Route: 058
     Dates: start: 20200627, end: 20200627

REACTIONS (14)
  - Skin mass [Unknown]
  - Pigmentation disorder [Not Recovered/Not Resolved]
  - Injection site pain [Unknown]
  - Hospitalisation [Unknown]
  - Skin haemorrhage [Unknown]
  - Rash [Unknown]
  - Dry skin [Unknown]
  - Eczema [Recovered/Resolved]
  - Skin ulcer [Unknown]
  - Skin fissures [Unknown]
  - Injection site urticaria [Unknown]
  - Nail bed bleeding [Unknown]
  - Product dose omission in error [Unknown]
  - Pruritus [Unknown]

NARRATIVE: CASE EVENT DATE: 2020
